FAERS Safety Report 23595815 (Version 1)
Quarter: 2024Q1

REPORT INFORMATION
  Report Type: Report from Study
  Country: GB (occurrence: GB)
  Receive Date: 20240305
  Receipt Date: 20240305
  Transmission Date: 20240410
  Serious: Yes (Hospitalization)
  Sender: FDA-Public Use
  Company Number: GB-SA-SAC20240115000872

PATIENT
  Age: 81 Year
  Sex: Male
  Weight: 57 kg

DRUGS (30)
  1. DEXAMETHASONE [Suspect]
     Active Substance: DEXAMETHASONE
     Indication: Plasma cell myeloma refractory
     Dosage: 10 MG, BIW
     Route: 065
     Dates: start: 20231116, end: 20231122
  2. DEXAMETHASONE [Suspect]
     Active Substance: DEXAMETHASONE
     Indication: Plasma cell myeloma refractory
     Dosage: 10 MG, BIW
     Route: 065
     Dates: start: 20231207, end: 20231220
  3. DEXAMETHASONE [Suspect]
     Active Substance: DEXAMETHASONE
     Indication: Plasma cell myeloma refractory
     Dosage: 10 MG, BIW, DURATION: 22 DAYS
     Route: 065
     Dates: start: 20230629, end: 20230720
  4. DEXAMETHASONE [Suspect]
     Active Substance: DEXAMETHASONE
     Indication: Plasma cell myeloma refractory
     Dosage: 10 MG, QD, DURATION: 5 DAYS , 10 MG DAILY
     Route: 065
     Dates: start: 20230420, end: 20230424
  5. DEXAMETHASONE [Suspect]
     Active Substance: DEXAMETHASONE
     Indication: Plasma cell myeloma refractory
     Dosage: 20 MG, QW, DURATION: 1 DAYS
     Route: 065
     Dates: start: 20230228, end: 20230228
  6. DEXAMETHASONE [Suspect]
     Active Substance: DEXAMETHASONE
     Indication: Plasma cell myeloma refractory
     Dosage: 10 MG, BIW
     Route: 065
     Dates: start: 20231220, end: 20231226
  7. DEXAMETHASONE [Suspect]
     Active Substance: DEXAMETHASONE
     Indication: Plasma cell myeloma refractory
     Dosage: 20 MG; DURATION ; 1 DAYS
     Route: 065
     Dates: start: 20221221, end: 20221221
  8. DEXAMETHASONE [Suspect]
     Active Substance: DEXAMETHASONE
     Indication: Plasma cell myeloma refractory
     Dosage: 10 MG;
     Route: 065
     Dates: start: 20231123, end: 20231123
  9. DEXAMETHASONE [Suspect]
     Active Substance: DEXAMETHASONE
     Indication: Plasma cell myeloma refractory
     Dosage: 10 MG, BIW
     Route: 065
     Dates: start: 20230921, end: 20231018
  10. DEXAMETHASONE [Suspect]
     Active Substance: DEXAMETHASONE
     Indication: Plasma cell myeloma refractory
     Dosage: 10 MG, BIW
     Route: 065
     Dates: start: 20231019, end: 20231101
  11. DEXAMETHASONE [Suspect]
     Active Substance: DEXAMETHASONE
     Indication: Plasma cell myeloma refractory
     Dosage: 10 MG; DURATION: 1 DAYS
     Route: 065
     Dates: start: 20230324, end: 20230324
  12. DEXAMETHASONE [Suspect]
     Active Substance: DEXAMETHASONE
     Indication: Plasma cell myeloma refractory
     Dosage: 10 MG, BIW, DURATION: 8 DAYS
     Route: 065
     Dates: start: 20230615, end: 20230622
  13. DEXAMETHASONE [Suspect]
     Active Substance: DEXAMETHASONE
     Indication: Plasma cell myeloma refractory
     Dosage: 10 MG, BIW
     Route: 065
     Dates: start: 20230824, end: 20230907
  14. DEXAMETHASONE [Suspect]
     Active Substance: DEXAMETHASONE
     Indication: Plasma cell myeloma refractory
     Dosage: 10 MG, BIW
     Route: 065
     Dates: start: 20230727, end: 20230810
  15. DEXAMETHASONE [Suspect]
     Active Substance: DEXAMETHASONE
     Indication: Plasma cell myeloma refractory
     Dosage: 10 MG;, DURATION: 1 DAYS
     Route: 065
     Dates: start: 20230504, end: 20230504
  16. DEXAMETHASONE [Suspect]
     Active Substance: DEXAMETHASONE
     Indication: Plasma cell myeloma refractory
     Dosage: 10 MG;
     Route: 065
     Dates: start: 20231102, end: 20231102
  17. DEXAMETHASONE [Suspect]
     Active Substance: DEXAMETHASONE
     Indication: Plasma cell myeloma refractory
     Dosage: 10 MG; DURATION: 1 DAYS
     Route: 065
     Dates: start: 20230602, end: 20230602
  18. DEXAMETHASONE [Suspect]
     Active Substance: DEXAMETHASONE
     Indication: Plasma cell myeloma refractory
     Dosage: 20 MG, BIW, DURATION : 68 DAYS
     Route: 065
     Dates: start: 20221222, end: 20230227
  19. DEXAMETHASONE [Suspect]
     Active Substance: DEXAMETHASONE
     Indication: Plasma cell myeloma refractory
     Dosage: 10 MG, QD, 10 MG DAILY, DURATION: 5 DAYS
     Route: 065
     Dates: start: 20230518, end: 20230522
  20. ACYCLOVIR [Concomitant]
     Active Substance: ACYCLOVIR
     Indication: Herpes virus infection
     Dosage: UNK; ;
     Dates: start: 20180124
  21. COTRIMOXAZOLE [Concomitant]
     Active Substance: SULFAMETHOXAZOLE\TRIMETHOPRIM
     Indication: Prophylaxis
     Dosage: UNK; ;
     Dates: start: 20180124
  22. CHLORPHENIRAMINE MALEATE [Concomitant]
     Active Substance: CHLORPHENIRAMINE MALEATE
     Indication: Premedication
     Dosage: UNK; ;
     Dates: start: 20221221
  23. FLUCONAZOLE [Concomitant]
     Active Substance: FLUCONAZOLE
     Indication: Fungal infection
     Dosage: UNK; ;
     Dates: start: 20180125
  24. LANSOPRAZOLE [Concomitant]
     Active Substance: LANSOPRAZOLE
     Indication: Prophylaxis
     Dosage: TIME INTERVAL: CYCLICAL: UNK UNK, QCY; CYCLICAL?					;
     Dates: start: 20180124
  25. DENOSUMAB [Concomitant]
     Active Substance: DENOSUMAB
     Indication: Prophylaxis
     Dosage: UNK; ;
     Dates: start: 20210505
  26. ADCAL [Concomitant]
     Indication: Mineral supplementation
     Dosage: UNK; ;
     Dates: start: 20231116
  27. CEFTAZIDIME [Concomitant]
     Active Substance: CEFTAZIDIME
     Dosage: UNK; DURATION: 1 DAYS
     Dates: start: 20231019, end: 20231019
  28. ASPIRIN [Concomitant]
     Active Substance: ASPIRIN
     Indication: Thrombosis prophylaxis
     Dosage: UNK; ;
     Dates: start: 20191019
  29. DOXYCYCLINE [Concomitant]
     Active Substance: DOXYCYCLINE
     Indication: Antibiotic prophylaxis
     Dosage: UNK; DURATION: 7 DAYS
     Dates: start: 20231207, end: 20231213
  30. ACETAMINOPHEN [Concomitant]
     Active Substance: ACETAMINOPHEN
     Indication: Premedication
     Dosage: UNK; ;
     Dates: start: 20221221

REACTIONS (1)
  - Metapneumovirus infection [Recovered/Resolved]

NARRATIVE: CASE EVENT DATE: 20231221
